FAERS Safety Report 15603899 (Version 1)
Quarter: 2018Q4

REPORT INFORMATION
  Report Type: Spontaneous
  Country: KR (occurrence: KR)
  Receive Date: 20181109
  Receipt Date: 20181109
  Transmission Date: 20190205
  Serious: Yes (Hospitalization, Other)
  Sender: FDA-Public Use
  Company Number: KR-009507513-1811KOR002143

PATIENT
  Sex: Female

DRUGS (4)
  1. KEYTRUDA [Suspect]
     Active Substance: PEMBROLIZUMAB
     Dosage: UNK
     Dates: start: 20180823, end: 20180823
  2. KEYTRUDA [Suspect]
     Active Substance: PEMBROLIZUMAB
     Dosage: UNK
     Dates: start: 20181002
  3. KEYTRUDA [Suspect]
     Active Substance: PEMBROLIZUMAB
     Indication: OVARIAN CANCER
     Dosage: UNK
     Dates: start: 20180802
  4. KEYTRUDA [Suspect]
     Active Substance: PEMBROLIZUMAB
     Dosage: UNK
     Dates: start: 20180913, end: 20180913

REACTIONS (2)
  - Small intestinal resection [Unknown]
  - Product use in unapproved indication [Unknown]

NARRATIVE: CASE EVENT DATE: 20180802
